FAERS Safety Report 15230994 (Version 1)
Quarter: 2018Q3

REPORT INFORMATION
  Report Type: Spontaneous
  Country: US (occurrence: US)
  Receive Date: 20180802
  Receipt Date: 20180802
  Transmission Date: 20181010
  Serious: Yes (Other)
  Sender: FDA-Public Use
  Company Number: US-ACCORD-063812

PATIENT
  Age: 62 Year
  Sex: Female
  Weight: 117.93 kg

DRUGS (3)
  1. NEOSAR [Concomitant]
     Active Substance: CYCLOPHOSPHAMIDE
  2. DOCETAXEL ACCORD [Suspect]
     Active Substance: DOCETAXEL
     Indication: INVASIVE DUCTAL BREAST CARCINOMA
     Dosage: DOSAGE: 150?155 MG??NO OF CYCLE: 04
     Dates: start: 20150402, end: 20150605
  3. HERCEPTIN [Suspect]
     Active Substance: TRASTUZUMAB
     Indication: INVASIVE DUCTAL BREAST CARCINOMA
     Dosage: NO OF CYCLE: 04
     Dates: start: 20150402, end: 20150605

REACTIONS (1)
  - Alopecia [Not Recovered/Not Resolved]
